FAERS Safety Report 9174882 (Version 1)
Quarter: 2013Q1

REPORT INFORMATION
  Report Type: Spontaneous
  Country: GB (occurrence: None)
  Receive Date: 20130315
  Receipt Date: 20130315
  Transmission Date: 20140127
  Serious: Yes (Other)
  Sender: FDA-Public Use
  Company Number: GER/UKI/13/0028542

PATIENT
  Age: 43 Year
  Sex: Female
  Weight: 75.29 kg

DRUGS (1)
  1. TERBINAFINE (TERBINAFINE) [Suspect]
     Indication: ONYCHOMYCOSIS
     Dosage: 250 MG, 1 IN 1 D, ORAL
     Route: 048
     Dates: start: 20120803, end: 20121016

REACTIONS (8)
  - Abdominal pain [None]
  - Abdominal distension [None]
  - Urine abnormality [None]
  - Dizziness [None]
  - Gamma-glutamyltransferase increased [None]
  - Vulvovaginal candidiasis [None]
  - Malaise [None]
  - Malaise [None]
